FAERS Safety Report 20246955 (Version 3)
Quarter: 2022Q1

REPORT INFORMATION
  Report Type: Report from Study
  Country: CA (occurrence: CA)
  Receive Date: 20211229
  Receipt Date: 20220214
  Transmission Date: 20220424
  Serious: No
  Sender: FDA-Public Use
  Company Number: CA-BRISTOL-MYERS SQUIBB COMPANY-BMS-2021-083602

PATIENT
  Age: 67 Year
  Sex: Male
  Weight: 87.4 kg

DRUGS (13)
  1. NIVOLUMAB [Suspect]
     Active Substance: NIVOLUMAB
     Indication: Pleural mesothelioma
     Dosage: 180 MILLIGRAM, Q2WK
     Route: 042
     Dates: start: 20210804
  2. NIVOLUMAB [Suspect]
     Active Substance: NIVOLUMAB
     Dosage: 270 MILLIGRAM, Q2WK
     Route: 042
     Dates: start: 20210804
  3. NIVOLUMAB [Suspect]
     Active Substance: NIVOLUMAB
     Dosage: 270 MILLIGRAM, Q2WK
     Route: 042
     Dates: start: 20210421
  4. NIVOLUMAB [Suspect]
     Active Substance: NIVOLUMAB
     Dosage: 267 MILLIGRAM, Q2WK
     Route: 042
     Dates: start: 20210804
  5. NIVOLUMAB [Suspect]
     Active Substance: NIVOLUMAB
     Dosage: 1000 MILLIGRAM, Q2WK
     Route: 065
     Dates: start: 20210804
  6. NIVOLUMAB [Suspect]
     Active Substance: NIVOLUMAB
     Dosage: 267 MILLIGRAM, Q2WK
     Route: 042
     Dates: start: 20210804
  7. YERVOY [Suspect]
     Active Substance: IPILIMUMAB
     Indication: Pleural mesothelioma
     Dosage: 90 MILLIGRAM, Q6WK
     Route: 042
     Dates: start: 20210804
  8. YERVOY [Suspect]
     Active Substance: IPILIMUMAB
     Dosage: 87 MILLIGRAM, Q6WK
     Route: 042
     Dates: start: 20210804
  9. YERVOY [Suspect]
     Active Substance: IPILIMUMAB
     Dosage: 89 MILLIGRAM, Q6WK
     Route: 042
     Dates: start: 20210804
  10. HYDROMORPHONE [Concomitant]
     Active Substance: HYDROMORPHONE
     Indication: Product used for unknown indication
     Dosage: UNK
     Route: 065
  11. ADVIL [Concomitant]
     Active Substance: IBUPROFEN
     Indication: Product used for unknown indication
     Dosage: UNK
     Route: 065
  12. VITAMIN C [Concomitant]
     Active Substance: ASCORBIC ACID
     Indication: Product used for unknown indication
     Dosage: UNK
     Route: 065
  13. VITAMIN D NOS [Concomitant]
     Active Substance: VITAMIN D NOS
     Indication: Product used for unknown indication
     Dosage: UNK
     Route: 065

REACTIONS (16)
  - Pain [Recovering/Resolving]
  - Fatigue [Recovering/Resolving]
  - Nausea [Recovering/Resolving]
  - Depression [Recovering/Resolving]
  - Anxiety [Recovering/Resolving]
  - Somnolence [Recovering/Resolving]
  - Appetite disorder [Recovering/Resolving]
  - Dyspnoea [Recovering/Resolving]
  - Malaise [Recovering/Resolving]
  - Chest pain [Unknown]
  - Insomnia [Unknown]
  - Pulmonary pain [Unknown]
  - Back pain [Unknown]
  - Feeling abnormal [Unknown]
  - Depressed mood [Unknown]
  - Off label use [Unknown]

NARRATIVE: CASE EVENT DATE: 20210818
